FAERS Safety Report 5232278-9 (Version None)
Quarter: 2007Q1

REPORT INFORMATION
  Report Type: 
  Country: None (occurrence: None)
  Receive Date: 20070207
  Receipt Date: 20070130
  Transmission Date: 20070707
  Serious: Yes (Other)
  Sender: FDA-Public Use
  Company Number: PHEH2006US15079

PATIENT
  Age: 78 Year
  Sex: Male

DRUGS (5)
  1. ZOMETA [Suspect]
     Indication: METASTASES TO BONE
     Dosage: 4MG Q4WK
     Dates: start: 20050207, end: 20061127
  2. TAXOTERE [Concomitant]
     Indication: PROSTATE CANCER METASTATIC
     Dosage: 140MG Q21D
     Dates: start: 20050815, end: 20060607
  3. VELBAN [Concomitant]
     Indication: PROSTATE CANCER METASTATIC
     Dosage: 7-10MG UNK
     Dates: start: 20060705, end: 20060828
  4. NIZORAL [Concomitant]
     Dates: start: 20060929
  5. PREDNISONE [Concomitant]
     Indication: PROSTATE CANCER METASTATIC
     Dosage: 10MG QOD
     Dates: start: 20050907

REACTIONS (6)
  - BONE DISORDER [None]
  - GINGIVAL SWELLING [None]
  - GINGIVITIS [None]
  - OSTEONECROSIS [None]
  - TOOTH EXTRACTION [None]
  - TOOTH REPAIR [None]
